FAERS Safety Report 8400030-9 (Version None)
Quarter: 2012Q2

REPORT INFORMATION
  Report Type: 
  Country: None (occurrence: None)
  Receive Date: 20120531
  Receipt Date: 20120523
  Transmission Date: 20120825
  Serious: Yes (Other)
  Sender: FDA-Public Use
  Company Number: US-ROCHE-1071651

PATIENT
  Sex: Female
  Weight: 72 kg

DRUGS (3)
  1. XELODA [Suspect]
     Indication: BREAST CANCER
     Dosage: DAY 1 TO DAY 14 OF A 21 DAY CYCLE
     Route: 048
     Dates: start: 20111223
  2. RAMUCIRUMAB [Suspect]
     Indication: BREAST CANCER
     Dosage: DAY 1 EVERY 21 DAYS, DATE OF LAST DOSE PRIOR TO SAE, 06 APR 2012
     Route: 042
     Dates: start: 20120203, end: 20120427
  3. RAMUCIRUMAB [Suspect]

REACTIONS (1)
  - HAEMANGIOMA [None]
